FAERS Safety Report 16760414 (Version 1)
Quarter: 2019Q3

REPORT INFORMATION
  Report Type: Spontaneous
  Country: US (occurrence: US)
  Receive Date: 20190830
  Receipt Date: 20190830
  Transmission Date: 20191005
  Serious: No
  Sender: FDA-Public Use
  Company Number: US-PFIZER INC-2019372821

PATIENT
  Age: 67 Year
  Sex: Female
  Weight: 58.96 kg

DRUGS (1)
  1. METAXALONE. [Suspect]
     Active Substance: METAXALONE
     Dosage: UNK

REACTIONS (2)
  - Tinnitus [Unknown]
  - Drug hypersensitivity [Unknown]
